FAERS Safety Report 21262813 (Version 1)
Quarter: 2022Q3

REPORT INFORMATION
  Report Type: Spontaneous
  Country: DK (occurrence: DK)
  Receive Date: 20220828
  Receipt Date: 20220828
  Transmission Date: 20221027
  Serious: Yes (Death, Hospitalization, Disabling)
  Sender: FDA-Public Use
  Company Number: None

PATIENT
  Age: 68 Year
  Sex: Male

DRUGS (2)
  1. METHOTREXATE [Suspect]
     Active Substance: METHOTREXATE
     Indication: Psoriatic arthropathy
     Dosage: ADJUSTED ACCORDING TO DISEASE ACTIVITY
     Dates: start: 20160624, end: 20190625
  2. METHOTREXATE [Suspect]
     Active Substance: METHOTREXATE
     Indication: Psoriatic arthropathy
     Dosage: TABLET (UNCOATED, ORAL), ADJUSTED ACCORDING TO DISEASE ACTIVITY
     Dates: start: 20130404, end: 20160624

REACTIONS (9)
  - Renal impairment [Fatal]
  - Chronic hepatitis [Fatal]
  - Hepatic cirrhosis [Fatal]
  - Hepatic failure [Fatal]
  - Oedema peripheral [Unknown]
  - Peritonitis [Fatal]
  - Thrombocytopenia [Unknown]
  - Anaemia [Unknown]
  - Abdominal distension [Unknown]

NARRATIVE: CASE EVENT DATE: 20190625
